FAERS Safety Report 22305805 (Version 2)
Quarter: 2023Q2

REPORT INFORMATION
  Report Type: Spontaneous
  Country: JP (occurrence: JP)
  Receive Date: 20230511
  Receipt Date: 20230530
  Transmission Date: 20230721
  Serious: Yes (Other)
  Sender: FDA-Public Use
  Company Number: JP-SA-2023SA142705

PATIENT
  Age: 67 Year
  Sex: Female
  Weight: 59 kg

DRUGS (7)
  1. DUPIXENT [Suspect]
     Active Substance: DUPILUMAB
     Indication: Chronic rhinosinusitis with nasal polyps
     Dosage: 300 MG, QOW
     Route: 058
     Dates: start: 20230309, end: 20230323
  2. GARENOXACIN MESYLATE [Concomitant]
     Active Substance: GARENOXACIN MESYLATE
     Indication: Infection
     Dosage: 200 MG, BID
     Route: 048
     Dates: start: 20230309, end: 20230313
  3. GARENOXACIN MESYLATE [Concomitant]
     Active Substance: GARENOXACIN MESYLATE
     Dosage: 200 MG, BID
     Route: 048
     Dates: start: 20230323, end: 20230328
  4. CLOSTRIDIUM BUTYRICUM SPORES STRAIN M-55 [Concomitant]
     Active Substance: CLOSTRIDIUM BUTYRICUM SPORES STRAIN M-55
     Indication: Product used for unknown indication
     Dosage: 1 DF, TID
     Route: 048
     Dates: start: 20230323, end: 20230328
  5. MONTELUKAST SODIUM [Concomitant]
     Active Substance: MONTELUKAST SODIUM
     Indication: Chronic eosinophilic rhinosinusitis
     Dosage: 10 MG, QD
     Route: 048
     Dates: start: 20151111
  6. CLARITHROMYCIN [Concomitant]
     Active Substance: CLARITHROMYCIN
     Indication: Chronic eosinophilic rhinosinusitis
     Dosage: 200 MG, QD
     Route: 048
     Dates: start: 20180420
  7. FLUTICASONE PROPIONATE\SALMETEROL XINAFOATE [Concomitant]
     Active Substance: FLUTICASONE PROPIONATE\SALMETEROL XINAFOATE
     Indication: Asthma
     Dosage: 250 MG, BID
     Route: 055
     Dates: start: 20221124

REACTIONS (10)
  - Eosinophilic granulomatosis with polyangiitis [Recovering/Resolving]
  - Dyspnoea [Recovered/Resolved]
  - Rash [Recovering/Resolving]
  - Purpura [Recovering/Resolving]
  - Nasal congestion [Recovered/Resolved]
  - Condition aggravated [Recovered/Resolved]
  - Olfactory dysfunction [Recovered/Resolved]
  - Cough [Recovered/Resolved]
  - Decreased appetite [Recovered/Resolved]
  - Ear pain [Recovered/Resolved]

NARRATIVE: CASE EVENT DATE: 20230329
